FAERS Safety Report 5291924-4 (Version None)
Quarter: 2007Q2

REPORT INFORMATION
  Report Type: 
  Country: None (occurrence: None)
  Receive Date: 20070403
  Receipt Date: 20070327
  Transmission Date: 20071010
  Serious: Yes (Hospitalization)
  Sender: FDA-Public Use
  Company Number: FABR-11940

PATIENT
  Sex: 0

DRUGS (1)
  1. FABRAZYME [Suspect]
     Indication: FABRY'S DISEASE

REACTIONS (3)
  - CORONARY ARTERY DISEASE [None]
  - DIALYSIS [None]
  - RENAL FAILURE [None]
